FAERS Safety Report 17608887 (Version 1)
Quarter: 2020Q2

REPORT INFORMATION
  Report Type: Spontaneous
  Country: US (occurrence: US)
  Receive Date: 20200401
  Receipt Date: 20200401
  Transmission Date: 20200713
  Serious: No
  Sender: FDA-Public Use
  Company Number: US-UCBSA-2015034729

PATIENT
  Sex: Male

DRUGS (2)
  1. METOLAZONE. [Suspect]
     Active Substance: METOLAZONE
     Indication: PRODUCT USED FOR UNKNOWN INDICATION
     Dosage: UNK
  2. VANCOMYCIN [Interacting]
     Active Substance: VANCOMYCIN
     Indication: PRODUCT USED FOR UNKNOWN INDICATION
     Dosage: UNK

REACTIONS (2)
  - Drug interaction [Unknown]
  - Electrocardiogram abnormal [Unknown]
